FAERS Safety Report 11120859 (Version 5)
Quarter: 2016Q1

REPORT INFORMATION
  Report Type: Report from Study
  Country: RU (occurrence: RU)
  Receive Date: 20150519
  Receipt Date: 20160219
  Transmission Date: 20160525
  Serious: Yes (Death, Life-Threatening, Hospitalization, Other)
  Sender: FDA-Public Use
  Company Number: RU-ALEXION PHARMACEUTICALS INC.-A201501664

PATIENT
  Age: 15 Year
  Sex: Male

DRUGS (3)
  1. SOLIRIS [Suspect]
     Active Substance: ECULIZUMAB
     Dosage: 1200 MG, Q2W
     Route: 042
     Dates: start: 20131005
  2. SOLIRIS [Suspect]
     Active Substance: ECULIZUMAB
     Dosage: 1200 MG, Q2W
     Route: 042
     Dates: start: 20131005
  3. SOLIRIS [Suspect]
     Active Substance: ECULIZUMAB
     Indication: HAEMOLYTIC URAEMIC SYNDROME
     Dosage: 900 MG, QW
     Route: 042
     Dates: start: 20130831, end: 20130928

REACTIONS (5)
  - B-cell type acute leukaemia [Not Recovered/Not Resolved]
  - Pyrexia [Unknown]
  - Burkitt^s lymphoma [Fatal]
  - Pyrexia [Unknown]
  - Poisoning [Unknown]

NARRATIVE: CASE EVENT DATE: 201502
